FAERS Safety Report 15298492 (Version 1)
Quarter: 2018Q3

REPORT INFORMATION
  Report Type: Report from Study
  Country: US (occurrence: US)
  Receive Date: 20180820
  Receipt Date: 20180820
  Transmission Date: 20181010
  Serious: Yes (Other)
  Sender: FDA-Public Use
  Company Number: US-GILEAD-2018-0357388

PATIENT
  Age: 75 Year
  Sex: Male

DRUGS (9)
  1. TYLENOL [Concomitant]
     Active Substance: ACETAMINOPHEN
  2. CLOMIPHENE CITRATE. [Concomitant]
     Active Substance: CLOMIPHENE CITRATE
  3. ALLOPURINOL. [Concomitant]
     Active Substance: ALLOPURINOL
  4. CIALIS [Concomitant]
     Active Substance: TADALAFIL
  5. MYRBETRIQ [Concomitant]
     Active Substance: MIRABEGRON
  6. NALTREXONE [Concomitant]
     Active Substance: NALTREXONE
  7. BELSOMRA [Concomitant]
     Active Substance: SUVOREXANT
  8. IDELALISIB [Suspect]
     Active Substance: IDELALISIB
     Indication: CHRONIC LYMPHOCYTIC LEUKAEMIA
     Dosage: 150 MG, BID
     Route: 065
     Dates: start: 20170914
  9. CELEBREX [Concomitant]
     Active Substance: CELECOXIB

REACTIONS (1)
  - Hip arthroplasty [Unknown]
